FAERS Safety Report 10330312 (Version 1)
Quarter: 2014Q3

REPORT INFORMATION
  Report Type: Report from Study
  Country: GB (occurrence: GB)
  Receive Date: 20140722
  Receipt Date: 20140722
  Transmission Date: 20150326
  Serious: Yes (Death)
  Sender: FDA-Public Use
  Company Number: GB-ROCHE-1438150

PATIENT
  Age: 65 Year
  Sex: Male

DRUGS (10)
  1. ONDANSETRON [Concomitant]
     Active Substance: ONDANSETRON
     Indication: TONGUE NEOPLASM MALIGNANT STAGE UNSPECIFIED
     Route: 048
     Dates: end: 20130117
  2. BEVACIZUMAB [Suspect]
     Active Substance: BEVACIZUMAB
     Indication: TONGUE NEOPLASM MALIGNANT STAGE UNSPECIFIED
     Route: 042
     Dates: end: 20130117
  3. LOPERAMIDE [Concomitant]
     Active Substance: LOPERAMIDE
     Indication: TONGUE NEOPLASM MALIGNANT STAGE UNSPECIFIED
     Route: 048
     Dates: end: 20130117
  4. SODIUM CHLORIDE. [Concomitant]
     Active Substance: SODIUM CHLORIDE
     Indication: TONGUE NEOPLASM MALIGNANT STAGE UNSPECIFIED
     Route: 042
     Dates: end: 20130117
  5. DEXAMETHASONE. [Concomitant]
     Active Substance: DEXAMETHASONE
     Indication: TONGUE NEOPLASM MALIGNANT STAGE UNSPECIFIED
     Route: 048
     Dates: end: 20130117
  6. CAPECITABINE [Suspect]
     Active Substance: CAPECITABINE
     Indication: TONGUE NEOPLASM MALIGNANT STAGE UNSPECIFIED
     Route: 048
     Dates: end: 20130117
  7. ATROPINE SULPHATE [Concomitant]
     Indication: TONGUE NEOPLASM MALIGNANT STAGE UNSPECIFIED
     Route: 058
     Dates: end: 20130117
  8. DEXAMETHASONE. [Concomitant]
     Active Substance: DEXAMETHASONE
     Indication: TONGUE NEOPLASM MALIGNANT STAGE UNSPECIFIED
     Route: 048
     Dates: end: 20130117
  9. IRINOTECAN [Concomitant]
     Active Substance: IRINOTECAN
     Indication: TONGUE NEOPLASM MALIGNANT STAGE UNSPECIFIED
     Route: 042
     Dates: end: 20130117
  10. DOMPERIDONE [Concomitant]
     Active Substance: DOMPERIDONE
     Indication: TONGUE NEOPLASM MALIGNANT STAGE UNSPECIFIED
     Route: 048
     Dates: end: 20130117

REACTIONS (1)
  - Death [Fatal]
